FAERS Safety Report 12845649 (Version 18)
Quarter: 2019Q4

REPORT INFORMATION
  Report Type: Report from Study
  Country: US (occurrence: US)
  Receive Date: 20161013
  Receipt Date: 20191126
  Transmission Date: 20200122
  Serious: Yes (Hospitalization)
  Sender: FDA-Public Use
  Company Number: US-ACTELION-A-US2016-138405

PATIENT
  Age: 72 Year
  Sex: Female
  Weight: 78.01 kg

DRUGS (12)
  1. SODIUM CHLORIDE. [Concomitant]
     Active Substance: SODIUM CHLORIDE
     Dosage: UNK
     Dates: start: 20191006
  2. UPTRAVI [Suspect]
     Active Substance: SELEXIPAG
     Indication: PULMONARY HYPERTENSION
     Dosage: 600 MCG, BID
     Route: 048
     Dates: start: 20171122
  3. UPTRAVI [Suspect]
     Active Substance: SELEXIPAG
     Dosage: 200 MCG, BID
     Route: 048
     Dates: start: 20160602
  4. ZOFRAN [Concomitant]
     Active Substance: ONDANSETRON HYDROCHLORIDE
     Dosage: UNK
     Dates: start: 20191006
  5. NITROFURANTOIN. [Concomitant]
     Active Substance: NITROFURANTOIN
  6. UPTRAVI [Suspect]
     Active Substance: SELEXIPAG
     Dosage: 800 MCG, BID
     Route: 048
     Dates: start: 20171122, end: 20181220
  7. UPTRAVI [Suspect]
     Active Substance: SELEXIPAG
     Dosage: 1600 MCG, BID
     Route: 048
  8. DILTIAZEM. [Concomitant]
     Active Substance: DILTIAZEM
  9. AFRIN [Concomitant]
     Active Substance: OXYMETAZOLINE
     Dosage: UNK
  10. OPSUMIT [Suspect]
     Active Substance: MACITENTAN
     Indication: PULMONARY HYPERTENSION
     Dosage: 10 MG, QD
     Route: 048
     Dates: start: 20140927
  11. UPTRAVI [Suspect]
     Active Substance: SELEXIPAG
     Dosage: 400 MCG, BID
     Route: 048
     Dates: start: 20171122
  12. ADCIRCA [Concomitant]
     Active Substance: TADALAFIL

REACTIONS (34)
  - Respiratory tract infection [Unknown]
  - Sciatic nerve injury [Unknown]
  - Pain in jaw [Unknown]
  - Musculoskeletal pain [Unknown]
  - Constipation [Recovered/Resolved]
  - Nasal congestion [Recovered/Resolved]
  - Rhinitis allergic [Recovered/Resolved]
  - Muscular weakness [Unknown]
  - Gastric disorder [Recovering/Resolving]
  - Disease progression [Recovered/Resolved]
  - Dizziness [Unknown]
  - Pneumonia [Unknown]
  - Influenza [Unknown]
  - Condition aggravated [Recovered/Resolved]
  - Neck pain [Unknown]
  - Abdominal pain upper [Unknown]
  - N-terminal prohormone brain natriuretic peptide increased [Unknown]
  - Pulmonary arterial hypertension [Recovered/Resolved]
  - Dyspnoea [Recovering/Resolving]
  - Oxygen therapy [Recovering/Resolving]
  - Vomiting [Recovered/Resolved]
  - Toothache [Unknown]
  - Diarrhoea [Recovered/Resolved]
  - Headache [Recovered/Resolved]
  - Pain in extremity [Recovered/Resolved]
  - Anaemia [Not Recovered/Not Resolved]
  - Escherichia urinary tract infection [Recovered/Resolved]
  - Blood pressure decreased [Unknown]
  - Asthenia [Unknown]
  - Nasopharyngitis [Unknown]
  - Nausea [Unknown]
  - Unevaluable event [Unknown]
  - Abdominal discomfort [Recovered/Resolved]
  - Dyspepsia [Unknown]

NARRATIVE: CASE EVENT DATE: 20150214
